FAERS Safety Report 17215789 (Version 1)
Quarter: 2019Q4

REPORT INFORMATION
  Report Type: Spontaneous
  Country: CA (occurrence: CA)
  Receive Date: 20191230
  Receipt Date: 20191230
  Transmission Date: 20200122
  Serious: Yes (Other)
  Sender: FDA-Public Use
  Company Number: CA-ALLERGAN-1952893US

PATIENT
  Sex: Male

DRUGS (9)
  1. PREDNISONE. [Suspect]
     Active Substance: PREDNISONE
     Indication: PRODUCT USED FOR UNKNOWN INDICATION
     Dosage: 40 MG, QD
  2. CITALOPRAM HYDROBROMIDE - BP [Suspect]
     Active Substance: CITALOPRAM HYDROBROMIDE
     Indication: PRODUCT USED FOR UNKNOWN INDICATION
     Dosage: 20 MG, QD
  3. ATIVAN [Suspect]
     Active Substance: LORAZEPAM
     Indication: PRODUCT USED FOR UNKNOWN INDICATION
     Dosage: UNK
  4. MEPOLIZUMAB [Suspect]
     Active Substance: MEPOLIZUMAB
     Indication: ASTHMA
     Dosage: 100 MG
     Route: 042
  5. SPORANOX [Suspect]
     Active Substance: ITRACONAZOLE
     Indication: PRODUCT USED FOR UNKNOWN INDICATION
     Dosage: 100 MG, Q8HR
  6. VENTOLIN [Suspect]
     Active Substance: ALBUTEROL SULFATE
     Indication: PRODUCT USED FOR UNKNOWN INDICATION
  7. AZITHROMYCIN ANHYDROUS. [Concomitant]
     Active Substance: AZITHROMYCIN ANHYDROUS
     Indication: PRODUCT USED FOR UNKNOWN INDICATION
     Dosage: 500 MG, QD
  8. RABEPRAZOLE [Suspect]
     Active Substance: RABEPRAZOLE
     Indication: PRODUCT USED FOR UNKNOWN INDICATION
  9. SYMBICORT [Suspect]
     Active Substance: BUDESONIDE\FORMOTEROL FUMARATE DIHYDRATE
     Indication: PRODUCT USED FOR UNKNOWN INDICATION
     Dosage: 2 DF, Q8HR

REACTIONS (13)
  - Respiratory disorder [Unknown]
  - Tendon disorder [Unknown]
  - Upper respiratory tract infection [Unknown]
  - Condition aggravated [Unknown]
  - Secretion discharge [Unknown]
  - Blood count abnormal [Unknown]
  - Bronchiectasis [Unknown]
  - Chest discomfort [Unknown]
  - Sinus congestion [Unknown]
  - Weight increased [Unknown]
  - Lymphadenopathy [Unknown]
  - Obstructive airways disorder [Unknown]
  - Cough [Unknown]
